FAERS Safety Report 10855935 (Version 2)
Quarter: 2015Q1

REPORT INFORMATION
  Report Type: Spontaneous
  Country: US (occurrence: US)
  Receive Date: 20150223
  Receipt Date: 20150226
  Transmission Date: 20150721
  Serious: Yes (Hospitalization, Congenital Anomaly, Other)
  Sender: FDA-Public Use
  Company Number: US-APOTEX-2015AP006721

PATIENT
  Sex: Male
  Weight: 4 kg

DRUGS (1)
  1. PAXIL [Suspect]
     Active Substance: PAROXETINE HYDROCHLORIDE
     Indication: MENTAL DISORDER
     Dosage: 20 MG, QD
     Route: 064

REACTIONS (7)
  - Persistent foetal circulation [Unknown]
  - Sepsis [Unknown]
  - Pulmonary oedema [Unknown]
  - Respiratory distress [Unknown]
  - Left ventricular dysfunction [Unknown]
  - Ventricular septal defect [Unknown]
  - Foetal exposure during pregnancy [Unknown]
